FAERS Safety Report 5733750-5 (Version None)
Quarter: 2008Q2

REPORT INFORMATION
  Report Type: 
  Country: None (occurrence: None)
  Receive Date: 20080509
  Receipt Date: 20080430
  Transmission Date: 20081010
  Serious: Yes (Other)
  Sender: FDA-Public Use
  Company Number: DE-ABBOTT-08P-062-0449717-00

PATIENT
  Age: 45 Year
  Sex: Male
  Weight: 91 kg

DRUGS (8)
  1. ZEMPLAR [Suspect]
     Indication: CONGENITAL CYSTIC KIDNEY DISEASE
     Route: 042
     Dates: start: 20051012
  2. ANTIPHOSPHAT [Concomitant]
     Indication: RENAL DISORDER
     Route: 048
  3. SEVELAMER [Concomitant]
     Indication: RENAL DISORDER
     Route: 048
  4. CONCOR 10 MG [Concomitant]
     Indication: HYPERTENSION
     Route: 048
  5. FUROSEMIDE [Concomitant]
     Indication: DRUG USE FOR UNKNOWN INDICATION
     Route: 048
     Dates: start: 20040501
  6. FUROSEMIDE [Concomitant]
     Route: 048
     Dates: start: 20060213
  7. OMEPRAZOLE [Concomitant]
     Indication: PROPHYLAXIS AGAINST GASTROINTESTINAL ULCER
     Route: 048
     Dates: start: 20040901
  8. SODIUM POLYSTYRENE SULFONATE [Concomitant]
     Indication: DRUG USE FOR UNKNOWN INDICATION

REACTIONS (1)
  - RENAL IMPAIRMENT [None]
